FAERS Safety Report 8986218 (Version 1)
Quarter: 2012Q4

REPORT INFORMATION
  Report Type: Report from Study
  Country: JP (occurrence: JP)
  Receive Date: 20121227
  Receipt Date: 20121227
  Transmission Date: 20130627
  Serious: Yes (Death)
  Sender: FDA-Public Use
  Company Number: JP-EISAI INC-E2020-11781-CLI-JP

PATIENT
  Age: 76 Year
  Sex: Male

DRUGS (6)
  1. ARICEPT [Suspect]
     Indication: DEMENTIA ALZHEIMER^S TYPE
     Route: 048
     Dates: start: 20110507, end: 20110520
  2. ARICEPT [Suspect]
     Route: 048
     Dates: start: 20110521, end: 20120811
  3. DETRUSITOL [Concomitant]
     Route: 048
  4. AVOLVE [Concomitant]
     Route: 048
  5. RISPERDAL [Concomitant]
     Route: 048
  6. ARTANE [Concomitant]

REACTIONS (1)
  - Cardio-respiratory arrest [Fatal]
